FAERS Safety Report 10768317 (Version 2)
Quarter: 2015Q1

REPORT INFORMATION
  Report Type: Spontaneous
  Country: DK (occurrence: DK)
  Receive Date: 20150206
  Receipt Date: 20150223
  Transmission Date: 20150721
  Serious: Yes (Death)
  Sender: FDA-Public Use
  Company Number: DK-ACCORD-028471

PATIENT
  Age: 63 Year
  Sex: Male

DRUGS (7)
  1. IBUPROFEN. [Concomitant]
     Active Substance: IBUPROFEN
     Dosage: 600MG X 3 DAILY
  2. DOCETAXEL. [Suspect]
     Active Substance: DOCETAXEL
     Indication: PROSTATE CANCER
     Dosage: FIRST-LINE CHEMOTHERPAY
  3. ACETYLSALICYLIC ACID [Concomitant]
     Active Substance: ASPIRIN
     Dosage: 75MG X 1 DAILY
  4. DENOSUMAB [Concomitant]
     Active Substance: DENOSUMAB
     Dosage: 120 GIVEN SUBCUTANEOUSLY EVERY FOUR WEEKS
     Route: 058
  5. PREDNISOLONE. [Suspect]
     Active Substance: PREDNISOLONE
     Indication: PROSTATE CANCER
  6. TRIPTORELIN/TRIPTORELIN ACETATE/TRIPTORELIN EMBONATE [Concomitant]
     Dosage: 22.5 MG GIVEN SUBCUTANEOUSLY EVERY SIX MONTHS
     Route: 058
  7. PANTOPRAZOLE [Concomitant]
     Active Substance: PANTOPRAZOLE SODIUM

REACTIONS (3)
  - Neutropenic colitis [Fatal]
  - Multi-organ failure [Fatal]
  - Septic shock [Fatal]
